FAERS Safety Report 4646171-3 (Version None)
Quarter: 2005Q2

REPORT INFORMATION
  Report Type: 
  Country: None (occurrence: None)
  Receive Date: 20050422
  Receipt Date: 20050422
  Transmission Date: 20051028
  Serious: Yes (Other)
  Sender: FDA-Public Use
  Company Number: None

PATIENT
  Sex: Female

DRUGS (1)
  1. DOUBLE TUSSIN DM DXTROMETH 30 MG; GUAIF 200 MG; ELGE, [Suspect]
     Indication: COUGH
     Dosage: 1 TEASPOONFUL ORALLY
     Route: 048
     Dates: start: 20051231

REACTIONS (5)
  - DIFFICULTY IN WALKING [None]
  - DISORIENTATION [None]
  - DIZZINESS [None]
  - HYPOAESTHESIA [None]
  - INCOHERENT [None]
